FAERS Safety Report 23523729 (Version 2)
Quarter: 2024Q1

REPORT INFORMATION
  Report Type: Spontaneous
  Country: BG (occurrence: BG)
  Receive Date: 20240214
  Receipt Date: 20240304
  Transmission Date: 20240410
  Serious: Yes (Other)
  Sender: FDA-Public Use
  Company Number: BG-TEVA-VS-3156548

PATIENT
  Sex: Female

DRUGS (3)
  1. BISOPROLOL [Suspect]
     Active Substance: BISOPROLOL\BISOPROLOL FUMARATE
     Indication: Hypertension
     Route: 065
  2. BISOPROLOL\PERINDOPRIL [Suspect]
     Active Substance: BISOPROLOL\PERINDOPRIL
     Indication: Hypertension
     Route: 065
  3. NEBIVOLOL [Suspect]
     Active Substance: NEBIVOLOL
     Indication: Hypertension
     Route: 065

REACTIONS (4)
  - Nodular melanoma [Recovering/Resolving]
  - Product contamination [Unknown]
  - Maternal exposure during pregnancy [Unknown]
  - Metastases to lung [Recovering/Resolving]
